FAERS Safety Report 20721364 (Version 1)
Quarter: 2022Q2

REPORT INFORMATION
  Report Type: Spontaneous
  Country: US (occurrence: None)
  Receive Date: 20220416
  Receipt Date: 20220416
  Transmission Date: 20220721
  Serious: Yes (Other)
  Sender: FDA-Public Use
  Company Number: None

PATIENT
  Age: 38 Year
  Sex: Female
  Weight: 78.75 kg

DRUGS (3)
  1. AMPHETAMINE\DEXTROAMPHETAMINE [Suspect]
     Active Substance: AMPHETAMINE\DEXTROAMPHETAMINE
     Indication: Product used for unknown indication
     Dosage: OTHER QUANTITY : 56 TABLET(S);?FREQUENCY : TWICE A DAY;?
     Route: 048
     Dates: start: 20220311, end: 20220313
  2. Prenatal [Concomitant]
  3. MOTRIN [Concomitant]
     Active Substance: IBUPROFEN

REACTIONS (4)
  - Drug ineffective [None]
  - Product substitution issue [None]
  - Blood pressure increased [None]
  - Paranoia [None]

NARRATIVE: CASE EVENT DATE: 20220415
